FAERS Safety Report 14976544 (Version 1)
Quarter: 2018Q2

REPORT INFORMATION
  Report Type: Spontaneous
  Country: TR (occurrence: TR)
  Receive Date: 20180605
  Receipt Date: 20180605
  Transmission Date: 20180711
  Serious: Yes (Other)
  Sender: FDA-Public Use
  Company Number: PHHY2018TR012710

PATIENT
  Age: 40 Year
  Sex: Female
  Weight: 80 kg

DRUGS (1)
  1. FINGYA [Suspect]
     Active Substance: FINGOLIMOD
     Indication: RELAPSING-REMITTING MULTIPLE SCLEROSIS
     Dosage: 0.5 MG, QD
     Route: 048

REACTIONS (2)
  - Pruritus [Recovered/Resolved with Sequelae]
  - Haemorrhage subcutaneous [Recovered/Resolved with Sequelae]

NARRATIVE: CASE EVENT DATE: 20171115
